FAERS Safety Report 14400577 (Version 2)
Quarter: 2018Q2

REPORT INFORMATION
  Report Type: Report from Study
  Country: US (occurrence: US)
  Receive Date: 20180117
  Receipt Date: 20180411
  Transmission Date: 20180711
  Serious: Yes (Hospitalization, Other)
  Sender: FDA-Public Use
  Company Number: US-UCBSA-2018001502

PATIENT
  Age: 33 Year
  Sex: Female
  Weight: 128 kg

DRUGS (4)
  1. KEPPRA [Suspect]
     Active Substance: LEVETIRACETAM
     Indication: SEIZURE
     Dosage: 1025 MG, 3X/DAY (TID)
     Dates: start: 201707
  2. LACOSAMIDE. [Suspect]
     Active Substance: LACOSAMIDE
     Indication: SEIZURE
     Dosage: 150 MG, 3X/DAY (TID)
     Dates: start: 201711
  3. LACOSAMIDE. [Suspect]
     Active Substance: LACOSAMIDE
     Dosage: 125 MG, 3X/DAY (TID)
     Dates: end: 201803
  4. LAMICTAL [Concomitant]
     Active Substance: LAMOTRIGINE
     Indication: SEIZURE
     Dosage: UNK, 3X/DAY (TID)
     Dates: start: 2008

REACTIONS (8)
  - Intentional product misuse [Unknown]
  - Off label use [Unknown]
  - Panic attack [Unknown]
  - Exposure during pregnancy [Unknown]
  - Seizure [Not Recovered/Not Resolved]
  - Generalised tonic-clonic seizure [Unknown]
  - Diplopia [Unknown]
  - Overdose [Unknown]

NARRATIVE: CASE EVENT DATE: 201707
